FAERS Safety Report 6808611-0 (Version None)
Quarter: 2010Q2

REPORT INFORMATION
  Report Type: 
  Country: None (occurrence: None)
  Receive Date: 20100629
  Receipt Date: 20090824
  Transmission Date: 20101027
  Serious: No
  Sender: FDA-Public Use
  Company Number: US-PFIZER INC-2009245779

PATIENT
  Sex: Male
  Weight: 95.2 kg

DRUGS (4)
  1. VIAGRA [Suspect]
     Indication: ERECTILE DYSFUNCTION
     Dosage: 25 MG, 1X/DAY DAILY DOSE: 25 MG
     Dates: start: 20090701, end: 20090701
  2. TOPROL-XL [Concomitant]
     Dosage: 150 MG, 1X/DAY DAILY DOSE: 150 MG
  3. LIPITOR [Concomitant]
     Dosage: 10 MG, 1X/DAY DAILY DOSE: 10 MG
  4. ACCUPRIL [Concomitant]
     Dosage: 10 MG, 1X/DAY DAILY DOSE: 10 MG

REACTIONS (2)
  - HEADACHE [None]
  - MYALGIA [None]
